FAERS Safety Report 5957114-4 (Version None)
Quarter: 2008Q4

REPORT INFORMATION
  Report Type: 
  Country: None (occurrence: None)
  Receive Date: 20081106
  Receipt Date: 20080620
  Transmission Date: 20090506
  Serious: Yes (Hospitalization)
  Sender: FDA-Public Use
  Company Number: US200806004712

PATIENT
  Sex: Male

DRUGS (1)
  1. PROZAC WEEKLY [Suspect]
     Dosage: 180 MG
     Dates: start: 20060101

REACTIONS (3)
  - BLOOD SODIUM DECREASED [None]
  - FEELING ABNORMAL [None]
  - OVERDOSE [None]
